FAERS Safety Report 17440210 (Version 1)
Quarter: 2020Q1

REPORT INFORMATION
  Report Type: Spontaneous
  Country: CN (occurrence: CN)
  Receive Date: 20200220
  Receipt Date: 20200220
  Transmission Date: 20200409
  Serious: Yes (Other)
  Sender: FDA-Public Use
  Company Number: CN-BAXTER-2020BAX003632

PATIENT
  Age: 62 Year
  Sex: Female
  Weight: 55 kg

DRUGS (5)
  1. PHARMORUBICIN [Suspect]
     Active Substance: EPIRUBICIN
     Indication: BREAST CANCER FEMALE
     Dosage: PHARMORUBICIN + NS 100ML, FIRST CHEMOTHERAPY
     Route: 041
     Dates: start: 20191120, end: 20191120
  2. 0.9% SODIUM CHLORIDE INJECTION [Suspect]
     Active Substance: SODIUM CHLORIDE
     Indication: MEDICATION DILUTION
     Dosage: ENDOXAN 930 MG + NS, FIRST CHEMOPTHERAPY
     Route: 042
     Dates: start: 20191120, end: 20191120
  3. ENDOXAN [Suspect]
     Active Substance: CYCLOPHOSPHAMIDE
     Indication: BREAST CANCER FEMALE
     Dosage: ENDOXAN + NS(50ML), FIRST CHEMOPTHERAPY
     Route: 042
     Dates: start: 20191120, end: 20191120
  4. JILIFEN [Suspect]
     Active Substance: FILGRASTIM
     Indication: ADVERSE EVENT
     Dosage: 1 TIME
     Route: 058
     Dates: start: 20191203
  5. 0.9% SODIUM CHLORIDE INJECTION [Suspect]
     Active Substance: SODIUM CHLORIDE
     Dosage: PHARMORUBICIN 130 MG + NS, FIRST CHEMOTHERAPY
     Route: 041
     Dates: start: 20191120, end: 20191120

REACTIONS (1)
  - Agranulocytosis [Recovered/Resolved]

NARRATIVE: CASE EVENT DATE: 20191203
